FAERS Safety Report 9548402 (Version 2)
Quarter: 2013Q4

REPORT INFORMATION
  Report Type: Report from Study
  Country: JP (occurrence: JP)
  Receive Date: 20130924
  Receipt Date: 20131101
  Transmission Date: 20140711
  Serious: Yes (Other)
  Sender: FDA-Public Use
  Company Number: PHHY2013JP105301

PATIENT
  Age: 82 Year
  Sex: Male

DRUGS (2)
  1. AMN107 [Suspect]
     Indication: CHRONIC MYELOID LEUKAEMIA
     Dosage: 300 MG, BID
     Route: 048
     Dates: start: 20110628, end: 20111212
  2. AMN107 [Suspect]
     Dosage: 225 MG, BID
     Route: 048
     Dates: start: 20111213

REACTIONS (1)
  - Electrocardiogram QT prolonged [Recovered/Resolved]
